FAERS Safety Report 15968597 (Version 1)
Quarter: 2019Q1

REPORT INFORMATION
  Report Type: Spontaneous
  Country: EG (occurrence: EG)
  Receive Date: 20190215
  Receipt Date: 20190215
  Transmission Date: 20190418
  Serious: Yes (Hospitalization)
  Sender: FDA-Public Use
  Company Number: EG-PFIZER INC-2019066121

PATIENT
  Age: 54 Year
  Sex: Male
  Weight: 90 kg

DRUGS (7)
  1. GLIMEPIRIDE. [Concomitant]
     Active Substance: GLIMEPIRIDE
     Indication: DIABETES MELLITUS
     Dosage: UNK UNK, 2X/DAY
  2. LYRICA [Suspect]
     Active Substance: PREGABALIN
     Indication: NEURALGIA
     Dosage: 75 MG, 2X/DAY
     Route: 048
  3. GLUCOPHAGE [Concomitant]
     Active Substance: METFORMIN HYDROCHLORIDE
     Indication: DIABETES MELLITUS
     Dosage: 1000 MG, DAILY
  4. THIOTACID [Suspect]
     Active Substance: THIOCTIC ACID
     Dosage: 600 MG, 2X/DAY
     Route: 048
  5. MILGA [Concomitant]
     Dosage: UNK UNK, 1X/DAY
  6. TRYPTIZOL [Concomitant]
     Active Substance: AMITRIPTYLINE HYDROCHLORIDE
     Indication: SLEEP DISORDER
     Dosage: 10 MG, DAILY
  7. DEPOVIT B12 [Concomitant]
     Dosage: AMPOULE EVERY 3 DAYS

REACTIONS (3)
  - Headache [Unknown]
  - Hypoglycaemic coma [Unknown]
  - Dyspnoea [Unknown]
